FAERS Safety Report 4550017-1 (Version None)
Quarter: 2005Q1

REPORT INFORMATION
  Report Type: 
  Country: None (occurrence: None)
  Receive Date: 20050111
  Receipt Date: 20050111
  Transmission Date: 20050727
  Serious: No
  Sender: FDA-Public Use
  Company Number: None

PATIENT
  Sex: Female
  Weight: 31.7518 kg

DRUGS (3)
  1. TEGRETOL [Suspect]
     Indication: CONVULSION
     Dosage: 200 MG TWO AM ONE NOON TWO PM
     Dates: start: 19800412, end: 20041230
  2. TEGRETOL [Suspect]
     Indication: HYDROCEPHALUS
     Dosage: 200 MG TWO AM ONE NOON TWO PM
     Dates: start: 19800412, end: 20041230
  3. ZYRTEC [Suspect]
     Indication: MULTIPLE ALLERGIES
     Dosage: 10 MG ONE 1 D
     Dates: start: 20000101, end: 20041230

REACTIONS (4)
  - PHARMACEUTICAL PRODUCT COMPLAINT [None]
  - POSTNASAL DRIP [None]
  - RETCHING [None]
  - VOMITING [None]
